FAERS Safety Report 23028224 (Version 1)
Quarter: 2023Q4

REPORT INFORMATION
  Report Type: Spontaneous
  Country: FR (occurrence: FR)
  Receive Date: 20231004
  Receipt Date: 20231004
  Transmission Date: 20240109
  Serious: Yes (Hospitalization)
  Sender: FDA-Public Use
  Company Number: None

PATIENT
  Age: 32 Year
  Sex: Male

DRUGS (3)
  1. TRAMADOL [Suspect]
     Active Substance: TRAMADOL\TRAMADOL HYDROCHLORIDE
     Indication: Product used for unknown indication
     Dosage: 200 MILLIGRAM, QD, IMMEDIATE RELEASE
     Route: 048
     Dates: start: 2023, end: 20230812
  2. TRAMADOL [Suspect]
     Active Substance: TRAMADOL\TRAMADOL HYDROCHLORIDE
     Dosage: 600 MILLIGRAM, QD,IMMEDIATE RELEASE
     Route: 048
     Dates: start: 2023, end: 20230812
  3. COCAINE [Suspect]
     Active Substance: COCAINE
     Indication: Product used for unknown indication
     Dosage: UNK, SNIFF G EVERY 2 - 3 DAYS THEN DAILY,
     Route: 045
     Dates: start: 2023

REACTIONS (3)
  - Drug abuse [Unknown]
  - Suicide attempt [Recovered/Resolved]
  - Behaviour disorder [Recovered/Resolved]

NARRATIVE: CASE EVENT DATE: 20230101
